FAERS Safety Report 5353157-2 (Version None)
Quarter: 2007Q2

REPORT INFORMATION
  Report Type: 
  Country: None (occurrence: None)
  Receive Date: 20070607
  Receipt Date: 20070528
  Transmission Date: 20071010
  Serious: No
  Sender: FDA-Public Use
  Company Number: 2007-158513-NL

PATIENT
  Age: 32 Year
  Sex: Female

DRUGS (1)
  1. ETONOGESTREL [Suspect]
     Indication: CONTRACEPTION
     Dosage: DF
     Route: 058
     Dates: start: 20060701, end: 20070205

REACTIONS (1)
  - ADENOCARCINOMA OF THE CERVIX [None]
